FAERS Safety Report 5289192-2 (Version None)
Quarter: 2007Q1

REPORT INFORMATION
  Report Type: 
  Country: None (occurrence: None)
  Receive Date: 20070119
  Receipt Date: 20060208
  Transmission Date: 20070707
  Serious: Yes (Other)
  Sender: FDA-Public Use
  Company Number: BDI-007929

PATIENT
  Age: 52 Year
  Sex: Female
  Weight: 60.5 kg

DRUGS (2)
  1. PROHANCE [Suspect]
     Indication: HYPOAESTHESIA FACIAL
     Dosage: 15 ML ONCE IV
     Route: 042
     Dates: start: 20060207, end: 20060207
  2. PROHANCE [Suspect]
     Indication: NUCLEAR MAGNETIC RESONANCE IMAGING BRAIN
     Dosage: 15 ML ONCE IV
     Route: 042
     Dates: start: 20060207, end: 20060207

REACTIONS (1)
  - HYPERSENSITIVITY [None]
